FAERS Safety Report 10077434 (Version 2)
Quarter: 2014Q2

REPORT INFORMATION
  Report Type: Report from Study
  Country: US (occurrence: US)
  Receive Date: 20140414
  Receipt Date: 20140505
  Transmission Date: 20141212
  Serious: Yes (Other)
  Sender: FDA-Public Use
  Company Number: PHEH2014US006836

PATIENT
  Sex: Female

DRUGS (3)
  1. GILENYA [Suspect]
     Indication: MULTIPLE SCLEROSIS
     Dosage: 0.5 MG, QD
     Route: 048
     Dates: start: 20110630
  2. GILENYA [Suspect]
     Dosage: 0.5 MG, QOD
     Route: 048
  3. PREDNISONE [Suspect]

REACTIONS (6)
  - Weight decreased [Unknown]
  - White blood cell count decreased [Unknown]
  - Drug hypersensitivity [Unknown]
  - Alopecia [Unknown]
  - Multiple sclerosis relapse [Unknown]
  - Prescribed underdose [Unknown]
